FAERS Safety Report 5682175-X (Version None)
Quarter: 2008Q1

REPORT INFORMATION
  Report Type: 
  Country: None (occurrence: None)
  Receive Date: 20080325
  Receipt Date: 20080314
  Transmission Date: 20080703
  Serious: Yes (Hospitalization, Other)
  Sender: FDA-Public Use
  Company Number: 062-21880-08021736

PATIENT
  Age: 81 Year
  Sex: Female
  Weight: 49 kg

DRUGS (4)
  1. REVLIMID [Suspect]
     Indication: PLASMACYTOMA
     Dosage: 25 MG, 1 IN 1 D, ORAL
     Route: 048
     Dates: start: 20080219, end: 20080228
  2. BORTEZOMIB (BORTEZOMIB) [Suspect]
     Indication: DRUG USE FOR UNKNOWN INDICATION
  3. DEXAMETHASONE TAB [Concomitant]
  4. BISPHOSPHONATES (BISOPHOSPHONATES) [Concomitant]

REACTIONS (4)
  - ALANINE AMINOTRANSFERASE INCREASED [None]
  - BLOOD LACTATE DEHYDROGENASE INCREASED [None]
  - PARAESTHESIA [None]
  - POLYNEUROPATHY [None]
